FAERS Safety Report 6085513-1 (Version None)
Quarter: 2009Q1

REPORT INFORMATION
  Report Type: 
  Country: None (occurrence: None)
  Receive Date: 20090220
  Receipt Date: 20090216
  Transmission Date: 20090719
  Serious: Yes (Hospitalization)
  Sender: FDA-Public Use
  Company Number: ES-BRISTOL-MYERS SQUIBB COMPANY-14510911

PATIENT
  Age: 83 Year
  Sex: Female

DRUGS (5)
  1. APROVEL FILM-COATED TABS [Suspect]
     Indication: HYPERTENSION
     Route: 048
     Dates: start: 20080701
  2. ALDACTONE [Suspect]
     Indication: HYPERTENSION
     Dosage: FORM- FILM COATED TABS
     Route: 048
     Dates: start: 20080701, end: 20090105
  3. COROPRES [Concomitant]
     Indication: HYPERTENSION
     Dosage: FORMULATION-TABS
     Route: 048
     Dates: start: 20080701, end: 20090105
  4. CHLORTHALIDONE [Concomitant]
     Indication: HYPERTENSION
     Dosage: FORMULATION-TABS
     Route: 048
     Dates: start: 20080701, end: 20090105
  5. SINTROM [Concomitant]
     Dosage: FORM-TABS
     Route: 048
     Dates: start: 20080701

REACTIONS (3)
  - ATRIAL FIBRILLATION [None]
  - BRADYARRHYTHMIA [None]
  - HYPERKALAEMIA [None]
